FAERS Safety Report 5038531-6 (Version None)
Quarter: 2006Q2

REPORT INFORMATION
  Report Type: 
  Country: None (occurrence: None)
  Receive Date: 20060601
  Receipt Date: 20060125
  Transmission Date: 20061013
  Serious: No
  Sender: FDA-Public Use
  Company Number: 2006PV007682

PATIENT
  Age: 60 Year
  Sex: Male
  Weight: 179.1708 kg

DRUGS (5)
  1. BYETTA [Suspect]
     Indication: DIABETES MELLITUS NON-INSULIN-DEPENDENT
     Dosage: 10 MCG;BID;SC
     Route: 058
     Dates: start: 20051220
  2. METFORMIN [Concomitant]
  3. GLYBURIDE [Concomitant]
  4. ROSIGLITAZONE [Concomitant]
  5. LORATADINE [Concomitant]

REACTIONS (5)
  - DECREASED APPETITE [None]
  - NASOPHARYNGITIS [None]
  - RHINORRHOEA [None]
  - SINUSITIS [None]
  - WEIGHT DECREASED [None]
